FAERS Safety Report 9249931 (Version 2)
Quarter: 2013Q4

REPORT INFORMATION
  Report Type: Report from Study
  Country: JP (occurrence: JP)
  Receive Date: 20130423
  Receipt Date: 20131101
  Transmission Date: 20140711
  Serious: Yes (Hospitalization)
  Sender: FDA-Public Use
  Company Number: JP-BRISTOL-MYERS SQUIBB COMPANY-14838254

PATIENT
  Age: 70 Year
  Sex: Female
  Weight: 61.6 kg

DRUGS (26)
  1. SPRYCEL [Suspect]
     Indication: ACUTE LYMPHOCYTIC LEUKAEMIA RECURRENT
     Dosage: INT15SP09,REST8OT-5NV9;8-JA10.?20MG/2D:21MY10-4AG11,5AG-29SP11,28OT-15MR12?10MG:30SP-27OT11,16MR12
     Route: 048
     Dates: start: 20090706
  2. CIPROXAN [Concomitant]
     Indication: INFECTION PROPHYLAXIS
     Dosage: TABS
     Route: 048
  3. DIFLUCAN [Concomitant]
     Indication: INFECTION PROPHYLAXIS
     Dosage: CAPSULE
     Route: 048
  4. MAXIPIME FOR INJ [Concomitant]
     Indication: INFECTION PROPHYLAXIS
     Dosage: 07JUL09-15JUL09,12AUG09-14AUG09,16SEP09-17SEP09;3G/DAY(28OCT09-28OCT09)IV,INJ;
     Route: 042
     Dates: start: 20090707, end: 20090917
  5. SALOBEL [Concomitant]
     Dosage: TABS;?ALSO TAKEN:150MGX3/DAY.
     Route: 048
     Dates: start: 20090706
  6. URALYT U [Concomitant]
     Dosage: 06JUL09,1DOSAGEFORM=9G/D,3G/D?08JUL09-ONG:9G/DAY
     Route: 048
     Dates: start: 20090706
  7. VIDARABINE [Concomitant]
     Route: 061
     Dates: start: 20090719
  8. MAGLAX [Concomitant]
     Dosage: TABS;990MG/DAY(20JUL09-ONG).?330MGX6/DAY
     Route: 048
     Dates: start: 20090720
  9. OMEGACIN [Concomitant]
     Indication: INFECTION PROPHYLAXIS
     Dosage: FORMULATION=INJ,16JUL09-25JUL09,15AUG09-25AUG09
     Route: 042
     Dates: start: 20090716, end: 20090825
  10. NOVOLIN R [Concomitant]
     Dosage: INJECTION,SC,1DOSAGEFORM=1-5UNITS/DAY
     Route: 030
     Dates: start: 20090810, end: 20090810
  11. CYTARABINE [Concomitant]
     Indication: ACUTE LYMPHOCYTIC LEUKAEMIA
     Dosage: INJECTION
     Route: 042
     Dates: start: 20091015, end: 20091019
  12. ACLARUBICIN HCL [Concomitant]
     Indication: ACUTE LYMPHOCYTIC LEUKAEMIA
     Dosage: INJECTION
     Route: 042
     Dates: start: 20091015, end: 20091019
  13. NILOTINIB [Concomitant]
     Indication: ACUTE LYMPHOCYTIC LEUKAEMIA
     Dosage: 27NOV-10DEC09;18DEC-28DEC09;CAPSULE
     Route: 048
     Dates: start: 20091127, end: 20091228
  14. RAMOSETRON HCL [Concomitant]
     Dosage: 1DF=1A;INJ
     Route: 042
     Dates: start: 20091015, end: 20091019
  15. DEPAS [Concomitant]
     Indication: INSOMNIA
     Route: 048
  16. HYDROCORTISONE OINTMENT [Concomitant]
     Route: 061
  17. FUROSEMIDE [Concomitant]
     Dosage: 1DF=1A;INJ
     Route: 042
     Dates: start: 20091021
  18. METOCLOPRAMIDE HCL INJ [Concomitant]
     Dosage: 1DF=1A
     Route: 042
     Dates: start: 20091018, end: 20091111
  19. MEROPENEM [Concomitant]
     Indication: PROPHYLAXIS
     Dosage: 1DF=0.5(UNITS NOT MENTIONED)
     Route: 042
     Dates: start: 20091029, end: 20091105
  20. MINOCYCLINE HCL [Concomitant]
     Indication: PROPHYLAXIS
     Dosage: INJECTION
     Route: 042
     Dates: start: 20091105, end: 20091109
  21. MICAFUNGIN SODIUM [Concomitant]
     Dosage: INJ
     Route: 042
     Dates: start: 20091028, end: 20091028
  22. LASIX [Concomitant]
     Indication: PROPHYLAXIS
     Dosage: TABS
     Route: 048
     Dates: start: 20091021, end: 20120209
  23. SALOBEL [Concomitant]
     Indication: PROPHYLAXIS
     Route: 048
     Dates: start: 20100106
  24. BROACT [Concomitant]
     Indication: INFECTION PROPHYLAXIS
     Route: 042
     Dates: start: 20090901, end: 20090907
  25. KLACID [Concomitant]
     Indication: INFECTION PROPHYLAXIS
     Route: 048
     Dates: start: 20090717, end: 20090724
  26. VANCOMYCIN HCL [Concomitant]
     Indication: PROPHYLAXIS
     Route: 048
     Dates: start: 20091112, end: 20091126

REACTIONS (4)
  - White blood cell count decreased [Recovered/Resolved]
  - Platelet count decreased [Recovered/Resolved]
  - Pleural effusion [Recovered/Resolved]
  - Anaemia [Recovered/Resolved]
